FAERS Safety Report 5811751-6 (Version None)
Quarter: 2008Q3

REPORT INFORMATION
  Report Type: 
  Country: None (occurrence: None)
  Receive Date: 20080716
  Receipt Date: 20080707
  Transmission Date: 20090109
  Serious: Yes (Other)
  Sender: FDA-Public Use
  Company Number: B0529097A

PATIENT
  Age: 62 Year
  Sex: Female
  Weight: 70 kg

DRUGS (6)
  1. VALACYCLOVIR HCL [Suspect]
     Indication: HERPES ZOSTER
     Dosage: 3000MG PER DAY
     Route: 048
     Dates: start: 20080328
  2. PREDNISOLONE [Suspect]
     Indication: INFECTION
     Dosage: 30MG PER DAY
     Route: 048
     Dates: start: 20080328
  3. ACETAMINOPHEN W/ CODEINE [Concomitant]
     Route: 048
     Dates: start: 20080328, end: 20080408
  4. HYDROCHLOROTHIAZIDE [Concomitant]
     Dosage: 12.5MG PER DAY
     Route: 048
     Dates: start: 20060315
  5. RANITIDINE HCL [Concomitant]
     Dosage: 150MG TWICE PER DAY
     Route: 048
     Dates: start: 20020202
  6. METOPROLOL TARTRATE [Concomitant]
     Dosage: 50MG PER DAY
     Route: 048
     Dates: start: 20050318

REACTIONS (2)
  - AGEUSIA [None]
  - ANOSMIA [None]
